FAERS Safety Report 15641422 (Version 1)
Quarter: 2018Q4

REPORT INFORMATION
  Report Type: Spontaneous
  Country: US (occurrence: US)
  Receive Date: 20181120
  Receipt Date: 20181120
  Transmission Date: 20190205
  Serious: No
  Sender: FDA-Public Use
  Company Number: US-NEXGEN PHARMA, INC.-2059130

PATIENT
  Age: 20 Year
  Sex: Female

DRUGS (3)
  1. CREAMS [Concomitant]
  2. CHENODAL [Suspect]
     Active Substance: CHENODIOL
     Indication: CATARACT
     Route: 048
     Dates: start: 20171223
  3. SPIRONOLACTONE. [Suspect]
     Active Substance: SPIRONOLACTONE

REACTIONS (1)
  - Memory impairment [Recovering/Resolving]
